FAERS Safety Report 19089262 (Version 3)
Quarter: 2021Q2

REPORT INFORMATION
  Report Type: Spontaneous
  Country: US (occurrence: US)
  Receive Date: 20210403
  Receipt Date: 20210409
  Transmission Date: 20210717
  Serious: No
  Sender: FDA-Public Use
  Company Number: US-VIIV HEALTHCARE LIMITED-US2021AMR070805

PATIENT
  Sex: Female

DRUGS (1)
  1. DOVATO [Suspect]
     Active Substance: DOLUTEGRAVIR SODIUM\LAMIVUDINE
     Indication: HIV INFECTION
     Dosage: 1 DF (TABLET), QD
     Dates: start: 20200202

REACTIONS (4)
  - Colonoscopy [Unknown]
  - T-lymphocyte count increased [Not Recovered/Not Resolved]
  - Product dose omission issue [Recovered/Resolved]
  - Biopsy breast [Unknown]
